FAERS Safety Report 6214204-9 (Version None)
Quarter: 2009Q2

REPORT INFORMATION
  Report Type: 
  Country: None (occurrence: None)
  Receive Date: 20090604
  Receipt Date: 20090602
  Transmission Date: 20091009
  Serious: Yes (Other)
  Sender: FDA-Public Use
  Company Number: US-BRISTOL-MYERS SQUIBB COMPANY-14646541

PATIENT
  Age: 35 Year
  Sex: Female
  Weight: 109 kg

DRUGS (3)
  1. ORENCIA [Suspect]
     Indication: RHEUMATOID ARTHRITIS
     Dates: start: 20080501
  2. METHOTREXATE [Concomitant]
  3. GLYBURIDE [Concomitant]

REACTIONS (3)
  - HYPOKALAEMIA [None]
  - PALPITATIONS [None]
  - WHITE BLOOD CELL COUNT INCREASED [None]
